FAERS Safety Report 7750185-4 (Version None)
Quarter: 2011Q3

REPORT INFORMATION
  Report Type: 
  Country: None (occurrence: None)
  Receive Date: 20110914
  Receipt Date: 20110914
  Transmission Date: 20111222
  Serious: Yes (Hospitalization, Disabling)
  Sender: FDA-Public Use
  Company Number: None

PATIENT
  Age: 52 Year
  Sex: Female
  Weight: 113.39 kg

DRUGS (1)
  1. LISINOPRIL [Suspect]
     Indication: HYPERTENSION
     Dosage: 20MG
     Route: 048
     Dates: start: 20100901, end: 20110714

REACTIONS (6)
  - SINUS TACHYCARDIA [None]
  - OVERDOSE [None]
  - ORTHOSTATIC HYPOTENSION [None]
  - LIGAMENT RUPTURE [None]
  - MENISCUS LESION [None]
  - SYNCOPE [None]
